FAERS Safety Report 12231294 (Version 3)
Quarter: 2016Q3

REPORT INFORMATION
  Report Type: Report from Study
  Country: US (occurrence: US)
  Receive Date: 20160401
  Receipt Date: 20160929
  Transmission Date: 20161109
  Serious: Yes (Hospitalization)
  Sender: FDA-Public Use
  Company Number: US-BIOGEN-2016BI00211777

PATIENT
  Age: 45 Year
  Sex: Female

DRUGS (2)
  1. TECFIDERA [Suspect]
     Active Substance: DIMETHYL FUMARATE
     Dosage: MAINTENANCE DOSE
     Route: 048
     Dates: start: 20140614, end: 20160513
  2. TECFIDERA [Suspect]
     Active Substance: DIMETHYL FUMARATE
     Indication: MULTIPLE SCLEROSIS
     Dosage: STARTING DOSE
     Route: 048
     Dates: start: 20140606, end: 20140613

REACTIONS (6)
  - Vertigo [Unknown]
  - Fall [Recovered/Resolved]
  - Spinal column injury [Unknown]
  - Thrombosis [Recovered/Resolved]
  - Multiple sclerosis relapse [Unknown]
  - Amnesia [Unknown]

NARRATIVE: CASE EVENT DATE: 201601
